FAERS Safety Report 17663096 (Version 5)
Quarter: 2020Q2

REPORT INFORMATION
  Report Type: Spontaneous
  Country: RU (occurrence: RU)
  Receive Date: 20200413
  Receipt Date: 20200617
  Transmission Date: 20200713
  Serious: Yes (Hospitalization, Other)
  Sender: FDA-Public Use
  Company Number: RU-US-PROVELL PHARMACEUTICALS LLC-9152866

PATIENT
  Age: 36 Year
  Sex: Female

DRUGS (27)
  1. EUTHYROX [Suspect]
     Active Substance: LEVOTHYROXINE SODIUM
     Dates: start: 20130430
  2. EUTHYROX [Suspect]
     Active Substance: LEVOTHYROXINE SODIUM
     Dosage: DOSE INCREASED
     Dates: start: 2014
  3. EUTHYROX [Suspect]
     Active Substance: LEVOTHYROXINE SODIUM
     Dosage: DOSE INCREASED DURING THIRD PREGNANCY
     Dates: start: 20181212
  4. FOLIC ACID. [Concomitant]
     Active Substance: FOLIC ACID
     Indication: PRODUCT USED FOR UNKNOWN INDICATION
  5. SIBAZON [Concomitant]
     Indication: PRODUCT USED FOR UNKNOWN INDICATION
  6. EUTHYROX [Suspect]
     Active Substance: LEVOTHYROXINE SODIUM
     Indication: AUTOIMMUNE THYROIDITIS
     Dates: start: 2008
  7. EUTHYROX [Suspect]
     Active Substance: LEVOTHYROXINE SODIUM
     Dosage: DOSE INCREASED DURING SECOND PREGNANCY
     Dates: start: 201304
  8. IODOMARIN [Concomitant]
     Active Substance: POTASSIUM IODIDE
     Indication: PRODUCT USED FOR UNKNOWN INDICATION
  9. BELLOID                            /00008702/ [Concomitant]
     Indication: PRODUCT USED FOR UNKNOWN INDICATION
  10. EUTHYROX [Suspect]
     Active Substance: LEVOTHYROXINE SODIUM
     Dates: start: 2012
  11. EUTHYROX [Suspect]
     Active Substance: LEVOTHYROXINE SODIUM
     Dosage: DOSE REDUCED AFTER FIRST PREGNANCY
     Dates: start: 201202
  12. DIACARB [Concomitant]
     Indication: PRODUCT USED FOR UNKNOWN INDICATION
     Route: 042
     Dates: start: 20090914
  13. EUTHYROX [Suspect]
     Active Substance: LEVOTHYROXINE SODIUM
     Dates: start: 2010
  14. DIACARB [Concomitant]
     Dosage: AT A DOSAGE OF 1 TABLET IN THE MORNING FOR 5 DAYS, THEN 3 DAYS BREAK
  15. NOVO-PASSIT [Concomitant]
     Active Substance: HERBALS
     Indication: PRODUCT USED FOR UNKNOWN INDICATION
  16. CAVINTON [Concomitant]
     Active Substance: VINPOCETINE
     Indication: PRODUCT USED FOR UNKNOWN INDICATION
  17. EUTHYROX [Suspect]
     Active Substance: LEVOTHYROXINE SODIUM
     Dosage: DOSE REDUCED AFTER SECOND PREGNANCY
     Dates: start: 2014
  18. EUTHYROX [Suspect]
     Active Substance: LEVOTHYROXINE SODIUM
     Dosage: DOSE INCREASED
     Dates: start: 2010
  19. EUTHYROX [Suspect]
     Active Substance: LEVOTHYROXINE SODIUM
     Dosage: DOSE INCREASED DURING FIRST PREGNANCY
     Dates: start: 2010
  20. EUTHYROX [Suspect]
     Active Substance: LEVOTHYROXINE SODIUM
     Dates: start: 201111
  21. EUTHYROX [Suspect]
     Active Substance: LEVOTHYROXINE SODIUM
     Dates: start: 2013
  22. EUTHYROX [Suspect]
     Active Substance: LEVOTHYROXINE SODIUM
     Dosage: IN THE SECOND HALF OF PREGNANCY
     Dates: start: 2018, end: 20190715
  23. L-THYROXINE                        /00068001/ [Concomitant]
     Active Substance: LEVOTHYROXINE
     Indication: AUTOIMMUNE THYROIDITIS
     Dates: start: 20131009
  24. L-THYROXINE                        /00068001/ [Concomitant]
     Active Substance: LEVOTHYROXINE
     Indication: HYPOTHYROIDISM
     Dates: start: 20161014
  25. EUTHYROX [Suspect]
     Active Substance: LEVOTHYROXINE SODIUM
     Indication: HYPOTHYROIDISM
     Dates: start: 20090914
  26. EUTHYROX [Suspect]
     Active Substance: LEVOTHYROXINE SODIUM
     Dosage: AFTER GIVING BIRTH TO THIRD CHILD IN JUL 2019
     Dates: start: 201907
  27. VINPOCETINE [Concomitant]
     Active Substance: VINPOCETINE
     Indication: PRODUCT USED FOR UNKNOWN INDICATION

REACTIONS (9)
  - Breast feeding [Not Recovered/Not Resolved]
  - Placenta praevia [Recovered/Resolved]
  - Maternal exposure during pregnancy [Recovered/Resolved]
  - Product prescribing error [Recovered/Resolved]
  - Tracheobronchitis [Recovered/Resolved]
  - Live birth [Recovered/Resolved]
  - Pyelonephritis [Recovered/Resolved]
  - Candida infection [Recovered/Resolved]
  - Anaemia of pregnancy [Recovered/Resolved]

NARRATIVE: CASE EVENT DATE: 201810
